FAERS Safety Report 7858293 (Version 13)
Quarter: 2015Q2

REPORT INFORMATION
  Report Type: Report from Study
  Country: CA (occurrence: CA)
  Receive Date: 20110316
  Receipt Date: 20150520
  Transmission Date: 20150821
  Serious: Yes (Hospitalization, Other)
  Sender: FDA-Public Use
  Company Number: CA-ROCHE-764644

PATIENT
  Age: 46 Year
  Sex: Male
  Weight: 68 kg

DRUGS (19)
  1. METHYLPREDNISOLONE. [Concomitant]
     Active Substance: METHYLPREDNISOLONE
     Indication: PREMEDICATION
     Route: 042
     Dates: start: 20120202
  2. BENADRYL [Concomitant]
     Active Substance: DIPHENHYDRAMINE HYDROCHLORIDE
     Route: 048
     Dates: start: 20150515
  3. SULFASALAZINE. [Concomitant]
     Active Substance: SULFASALAZINE
  4. CEFPROZIL. [Concomitant]
     Active Substance: CEFPROZIL
     Dosage: REPORTED DRUG:CEPROZIL
     Route: 065
  5. DIPHENHYDRAMINE HCL [Concomitant]
     Active Substance: DIPHENHYDRAMINE HYDROCHLORIDE
     Indication: PREMEDICATION
     Route: 048
     Dates: start: 20120202
  6. BENADRYL [Concomitant]
     Active Substance: DIPHENHYDRAMINE HYDROCHLORIDE
     Route: 048
     Dates: start: 20150428, end: 20150428
  7. HYDROCHLOROTHIAZIDE. [Concomitant]
     Active Substance: HYDROCHLOROTHIAZIDE
     Dosage: DRUG: HYDROCHLORIZIDE
     Route: 065
  8. PREDNISONE. [Concomitant]
     Active Substance: PREDNISONE
  9. ACTEMRA [Suspect]
     Active Substance: TOCILIZUMAB
     Indication: RHEUMATOID ARTHRITIS
     Route: 042
  10. ACTEMRA [Suspect]
     Active Substance: TOCILIZUMAB
     Route: 042
     Dates: start: 20110127, end: 20110831
  11. ENALAPRIL [Concomitant]
     Active Substance: ENALAPRIL
     Route: 065
  12. ARTHROTEC [Concomitant]
     Active Substance: DICLOFENAC SODIUM\MISOPROSTOL
     Route: 065
  13. HYDROMORPHONE [Concomitant]
     Active Substance: HYDROMORPHONE
     Dosage: REPORTED DRUG: HYDROMORPH?TO BE TAKEN AS NECESSARY
     Route: 065
  14. RITUXAN [Suspect]
     Active Substance: RITUXIMAB
     Indication: RHEUMATOID ARTHRITIS
     Dosage: LAST INFUSION WAS ON 28/APR/2015
     Route: 042
     Dates: start: 20120202
  15. DILAUDID [Concomitant]
     Active Substance: HYDROMORPHONE HYDROCHLORIDE
  16. PANTOLOC [Concomitant]
     Active Substance: PANTOPRAZOLE SODIUM
     Dosage: REPORTED DRUG: PANTALOC
     Route: 065
  17. PANTOPRAZOLE [Concomitant]
     Active Substance: PANTOPRAZOLE SODIUM
  18. HYDROQUINONE. [Concomitant]
     Active Substance: HYDROQUINONE
     Dosage: DRUG: HYDROXYQUININE
     Route: 065
  19. ACETAMINOPHEN. [Concomitant]
     Active Substance: ACETAMINOPHEN
     Indication: PREMEDICATION
     Route: 048
     Dates: start: 20120202

REACTIONS (18)
  - Abdominal pain upper [Not Recovered/Not Resolved]
  - Skin abrasion [Unknown]
  - Arthropathy [Unknown]
  - Anal fistula [Recovering/Resolving]
  - Osteomyelitis [Recovering/Resolving]
  - Anal abscess [Not Recovered/Not Resolved]
  - Contusion [Unknown]
  - Hypotension [Unknown]
  - Fall [Unknown]
  - Oxygen saturation decreased [Unknown]
  - Injection site extravasation [Unknown]
  - Arthralgia [Unknown]
  - Pancreatic disorder [Not Recovered/Not Resolved]
  - Facial pain [Unknown]
  - Contusion [Unknown]
  - Wound [Not Recovered/Not Resolved]
  - Fracture [Unknown]
  - Drug ineffective [Unknown]

NARRATIVE: CASE EVENT DATE: 20110223
